FAERS Safety Report 13665699 (Version 1)
Quarter: 2017Q2

REPORT INFORMATION
  Report Type: Spontaneous
  Country: FR (occurrence: FR)
  Receive Date: 20170619
  Receipt Date: 20170619
  Transmission Date: 20170830
  Serious: Yes (Death, Other)
  Sender: FDA-Public Use
  Company Number: FR-EDENBRIDGE PHARMACEUTICALS, LLC-FR-2017EDE000069

PATIENT
  Age: 56 Year
  Sex: Male

DRUGS (1)
  1. PREDNISOLONE SODIUM PHOSPHATE. [Suspect]
     Active Substance: PREDNISOLONE SODIUM PHOSPHATE
     Indication: DERMATOMYOSITIS
     Dosage: 60 MG, QD

REACTIONS (6)
  - C-reactive protein increased [Unknown]
  - Lung disorder [Unknown]
  - Respiratory distress [Not Recovered/Not Resolved]
  - Lymphopenia [Unknown]
  - Pneumocystis jirovecii pneumonia [Fatal]
  - Hypoxia [Unknown]
